FAERS Safety Report 6645877-4 (Version None)
Quarter: 2010Q1

REPORT INFORMATION
  Report Type: 
  Country: None (occurrence: None)
  Receive Date: 20100323
  Receipt Date: 20100311
  Transmission Date: 20100710
  Serious: Yes (Disabling, Other)
  Sender: FDA-Public Use
  Company Number: PHHY2010ZA07376

PATIENT
  Sex: Female

DRUGS (3)
  1. ZOMETA [Suspect]
     Indication: METASTASES TO BONE
     Dosage: 4 MG, QMO
     Route: 042
     Dates: start: 20071213, end: 20100108
  2. IBANDRONIC ACID [Concomitant]
     Dosage: UNK
  3. CORTICOSTEROIDS [Concomitant]
     Indication: NEOPLASM MALIGNANT

REACTIONS (3)
  - INFECTION [None]
  - OSTEONECROSIS [None]
  - PAIN [None]
